FAERS Safety Report 9983429 (Version 1)
Quarter: 2014Q1

REPORT INFORMATION
  Report Type: Spontaneous
  Country: US (occurrence: US)
  Receive Date: 20140307
  Receipt Date: 20140307
  Transmission Date: 20141002
  Serious: No
  Sender: FDA-Public Use
  Company Number: US-BAYER-2014-035189

PATIENT
  Age: 75 Year
  Sex: Male
  Weight: 108.84 kg

DRUGS (1)
  1. ALEVE CAPLET [Suspect]
     Indication: ARTHRITIS
     Dosage: 1 DF, BID EVERY 12 HOURS
     Route: 048
     Dates: start: 20140227, end: 20140303

REACTIONS (2)
  - Local swelling [Not Recovered/Not Resolved]
  - Drug ineffective [None]
